FAERS Safety Report 18687652 (Version 11)
Quarter: 2022Q3

REPORT INFORMATION
  Report Type: Spontaneous
  Country: JP (occurrence: JP)
  Receive Date: 20201231
  Receipt Date: 20220913
  Transmission Date: 20221027
  Serious: Yes (Life-Threatening, Hospitalization, Other)
  Sender: FDA-Public Use
  Company Number: JP-BRISTOL-MYERS SQUIBB COMPANY-BMS-2020-081385

PATIENT
  Age: 46 Year
  Sex: Female
  Weight: 50.6 kg

DRUGS (6)
  1. NIVOLUMAB [Suspect]
     Active Substance: NIVOLUMAB
     Indication: Metastases to lung
     Dosage: 240 MILLIGRAM
     Route: 041
     Dates: start: 20200708, end: 20200909
  2. NIVOLUMAB [Suspect]
     Active Substance: NIVOLUMAB
     Indication: Metastatic renal cell carcinoma
  3. IPILIMUMAB [Suspect]
     Active Substance: IPILIMUMAB
     Indication: Metastases to lung
     Dosage: 50 MILLIGRAM [1 MG/KG]
     Route: 041
     Dates: start: 20200708, end: 20200909
  4. IPILIMUMAB [Suspect]
     Active Substance: IPILIMUMAB
     Indication: Metastatic renal cell carcinoma
  5. SULFAMETHOXAZOLE\TRIMETHOPRIM [Suspect]
     Active Substance: SULFAMETHOXAZOLE\TRIMETHOPRIM
     Indication: Prophylaxis
     Dosage: 1 DF, EVERYDAY
     Route: 048
     Dates: start: 20200922, end: 20201001
  6. SULFAMETHOXAZOLE\TRIMETHOPRIM [Suspect]
     Active Substance: SULFAMETHOXAZOLE\TRIMETHOPRIM
     Indication: Immune-mediated lung disease

REACTIONS (7)
  - Cytokine release syndrome [Recovered/Resolved]
  - Drug reaction with eosinophilia and systemic symptoms [Recovered/Resolved]
  - Immune-mediated lung disease [Recovered/Resolved]
  - Tumour pseudoprogression [Recovering/Resolving]
  - Liver disorder [Unknown]
  - Renal disorder [Unknown]
  - Cytopenia [Unknown]

NARRATIVE: CASE EVENT DATE: 20200920
